FAERS Safety Report 25631335 (Version 3)
Quarter: 2025Q3

REPORT INFORMATION
  Report Type: Report from Study
  Country: KR (occurrence: KR)
  Receive Date: 20250801
  Receipt Date: 20250923
  Transmission Date: 20251021
  Serious: Yes (Hospitalization, Other)
  Sender: SUNOVION
  Company Number: KR-BIAL-BIAL-19463

PATIENT
  Sex: Female
  Weight: 38.5 kg

DRUGS (29)
  1. ESLICARBAZEPINE ACETATE [Suspect]
     Active Substance: ESLICARBAZEPINE ACETATE
     Indication: Epilepsy
     Dosage: 400 MILLIGRAM, QD
     Route: 048
     Dates: start: 20241128, end: 20250210
  2. ESLICARBAZEPINE ACETATE [Suspect]
     Active Substance: ESLICARBAZEPINE ACETATE
     Dosage: 800 MILLIGRAM, QD
     Route: 048
     Dates: start: 20250211, end: 20250310
  3. ESLICARBAZEPINE ACETATE [Suspect]
     Active Substance: ESLICARBAZEPINE ACETATE
     Dosage: 400 MILLIGRAM, QD
     Route: 048
     Dates: start: 20250311, end: 20250616
  4. ESLICARBAZEPINE ACETATE [Suspect]
     Active Substance: ESLICARBAZEPINE ACETATE
     Dosage: 1400 MILLIGRAM, QD
     Route: 048
     Dates: start: 20250617
  5. OPSUMIT [Concomitant]
     Active Substance: MACITENTAN
     Indication: Pulmonary arterial hypertension
     Dosage: 1 DOSAGE FORM, QD
     Route: 048
     Dates: start: 20210304, end: 20250210
  6. UPTRAVI [Concomitant]
     Active Substance: SELEXIPAG
     Indication: Pulmonary arterial hypertension
     Dosage: 1 DOSAGE FORM, BID
     Route: 048
     Dates: start: 20210603
  7. HERBALS [Concomitant]
     Active Substance: HERBALS
     Indication: Abdominal pain upper
     Dosage: 1 DOSAGE FORM, BID
     Route: 048
     Dates: start: 20241015
  8. Macifen [Concomitant]
     Indication: Pulmonary arterial hypertension
     Dosage: 1 DOSAGE FORM, QD
     Route: 048
     Dates: start: 20250211
  9. Ceftriaxone boryung [Concomitant]
     Indication: Cerebral microembolism
     Dosage: 1 DOSAGE FORM
     Dates: start: 20250306, end: 20250314
  10. ASPIRIN [Concomitant]
     Active Substance: ASPIRIN
     Indication: Cardiac failure
     Dosage: 1 DOSAGE FORM, QD
     Route: 048
     Dates: start: 20250320
  11. LAMICTAL [Concomitant]
     Active Substance: LAMOTRIGINE
     Indication: Epilepsy
     Route: 048
     Dates: start: 20211209, end: 20250616
  12. Epilatam [Concomitant]
     Indication: Epilepsy
     Dosage: 1 DOSAGE FORM, BID
     Route: 048
     Dates: start: 20211209, end: 20250616
  13. CHOLINE ALFOSCERATE [Concomitant]
     Active Substance: CHOLINE ALFOSCERATE
     Indication: Cognitive rehabilitation
     Dosage: 1 DOSAGE FORM, BID
     Route: 048
     Dates: start: 20211209
  14. ZONISAMIDE [Concomitant]
     Active Substance: ZONISAMIDE
     Indication: Epilepsy
     Dosage: 1 DOSAGE FORM, BID
     Route: 048
     Dates: start: 20220616
  15. SILDENAFIL CITRATE [Concomitant]
     Active Substance: SILDENAFIL CITRATE
     Indication: Pulmonary arterial hypertension
     Route: 048
  16. LASIX [Concomitant]
     Active Substance: FUROSEMIDE
     Indication: Cardiac failure
     Route: 048
  17. SPIRONOLACTONE [Concomitant]
     Active Substance: SPIRONOLACTONE
     Indication: Cardiac failure
     Dosage: 0.5 DOSAGE FORM, QD
     Route: 048
     Dates: start: 20230608
  18. PANTOPRAZOLE SODIUM [Concomitant]
     Active Substance: PANTOPRAZOLE SODIUM
     Indication: Gastritis
     Dosage: 1 DOSAGE FORM, QD
     Route: 048
     Dates: start: 20230313
  19. Ultracet er semi [Concomitant]
     Indication: Pulmonary arterial hypertension
     Route: 048
  20. Bioflor [Concomitant]
     Indication: Diarrhoea
     Dosage: 1 DOSAGE FORM, BID
     Route: 048
     Dates: start: 20210902
  21. Ganakhan [Concomitant]
     Indication: Abdominal pain upper
     Dosage: 1 DOSAGE FORM, BID
     Route: 048
     Dates: start: 20240919
  22. JARDIANCE [Concomitant]
     Active Substance: EMPAGLIFLOZIN
     Indication: Diabetes mellitus
     Dosage: 1 DOSAGE FORM, QD
     Route: 048
     Dates: start: 20250307
  23. NAFTOPIDIL [Concomitant]
     Active Substance: NAFTOPIDIL
     Indication: Prophylaxis
     Dosage: 1 DOSAGE FORM, QD
     Route: 048
     Dates: start: 20250313, end: 20250622
  24. WARFARIN [Concomitant]
     Active Substance: WARFARIN
     Indication: Cerebral microembolism
     Dosage: 1 DOSAGE FORM, QD
     Route: 048
     Dates: start: 20250313, end: 20250320
  25. Donga acetaminophen [Concomitant]
     Indication: Cerebral microembolism
     Dosage: 1 DOSAGE FORM, BID
     Route: 048
     Dates: start: 20250314, end: 20250320
  26. Febuxoric [Concomitant]
     Indication: Proteinuria
     Dosage: 0.5 DOSAGE FORM, QD
     Route: 048
     Dates: start: 20250317
  27. Labicitin [Concomitant]
     Indication: Epilepsy
     Route: 048
  28. Kepiram [Concomitant]
     Indication: Epilepsy
     Dosage: 1 DOSAGE FORM, BID
     Route: 048
     Dates: start: 20250617
  29. RIVOTRIL [Concomitant]
     Active Substance: CLONAZEPAM
     Dosage: 1 DOSAGE FORM, QD
     Route: 048
     Dates: start: 20250617

REACTIONS (5)
  - Cerebral microembolism [Recovered/Resolved]
  - Diabetes mellitus [Recovering/Resolving]
  - Underdose [Recovered/Resolved]
  - Drug titration error [Recovered/Resolved]
  - Underdose [Recovered/Resolved]

NARRATIVE: CASE EVENT DATE: 20240101
